FAERS Safety Report 5654360-4 (Version None)
Quarter: 2008Q1

REPORT INFORMATION
  Report Type: 
  Country: None (occurrence: None)
  Receive Date: 20080305
  Receipt Date: 20080225
  Transmission Date: 20080703
  Serious: Yes (Life-Threatening, Hospitalization)
  Sender: FDA-Public Use
  Company Number: 231621J08USA

PATIENT
  Age: 37 Year
  Sex: Female

DRUGS (7)
  1. REBIF [Suspect]
     Indication: MULTIPLE SCLEROSIS
     Dosage: 8.8 MCG, 3 IN 1 WEEKS, SUBCUTANEOUS
     Route: 058
     Dates: start: 20080204, end: 20080213
  2. LYRICA [Concomitant]
  3. HYDROCODONE (HYDROCODONE) [Concomitant]
  4. ROBAXIN [Concomitant]
  5. XANAX [Concomitant]
  6. BIRTH CONTROL PILLS (ORAL CONTRACEPTIVE NOS) [Concomitant]
  7. TYLENOL (COTYLENOL) [Concomitant]

REACTIONS (10)
  - ABASIA [None]
  - BLOOD POTASSIUM DECREASED [None]
  - FATIGUE [None]
  - FEELING ABNORMAL [None]
  - LISTLESS [None]
  - LOSS OF CONSCIOUSNESS [None]
  - OVERDOSE [None]
  - PAIN [None]
  - PNEUMONIA [None]
  - RENAL FAILURE [None]
